FAERS Safety Report 6231404-2 (Version None)
Quarter: 2009Q2

REPORT INFORMATION
  Report Type: 
  Country: None (occurrence: None)
  Receive Date: 20090616
  Receipt Date: 20090610
  Transmission Date: 20091009
  Serious: Yes (Hospitalization)
  Sender: FDA-Public Use
  Company Number: FR-WYE-G03829109

PATIENT
  Sex: Female
  Weight: 70 kg

DRUGS (12)
  1. RAPAMUNE [Suspect]
     Indication: PROPHYLAXIS AGAINST TRANSPLANT REJECTION
     Route: 048
     Dates: start: 20070530
  2. RAPAMUNE [Suspect]
     Indication: SQUAMOUS CELL CARCINOMA
  3. EXFORGE [Concomitant]
     Route: 048
     Dates: start: 20080227
  4. SOLUPRED [Concomitant]
     Route: 048
  5. TARDYFERON [Concomitant]
     Dosage: 160 MG TOTAL DAILY
     Route: 048
  6. ARANESP [Concomitant]
     Route: 058
  7. ROCALTROL [Concomitant]
     Dosage: 3 TABLETS TOTAL WEEKLY
     Route: 048
  8. TAHOR [Concomitant]
     Route: 048
  9. FOSAMAX [Concomitant]
     Route: 048
  10. VITAMIN B1 AND B6 [Concomitant]
     Route: 048
  11. TENORMIN [Concomitant]
     Route: 048
     Dates: start: 20080527
  12. OROCAL [Concomitant]
     Route: 048

REACTIONS (2)
  - BLOOD CREATININE INCREASED [None]
  - GLOMERULOSCLEROSIS [None]
